FAERS Safety Report 22388645 (Version 1)
Quarter: 2023Q2

REPORT INFORMATION
  Report Type: Spontaneous
  Country: US (occurrence: US)
  Receive Date: 20230531
  Receipt Date: 20230531
  Transmission Date: 20230722
  Serious: No
  Sender: FDA-Public Use
  Company Number: US-AMNEAL PHARMACEUTICALS-2022-AMRX-01840

PATIENT
  Sex: Male
  Weight: 90.72 kg

DRUGS (1)
  1. MEMANTINE HYDROCHLORIDE [Suspect]
     Active Substance: MEMANTINE HYDROCHLORIDE
     Indication: Brain fog
     Dosage: UNK
     Route: 048
     Dates: start: 20220418, end: 20220514

REACTIONS (2)
  - Drug ineffective [Unknown]
  - Somnolence [None]
